FAERS Safety Report 18236296 (Version 1)
Quarter: 2020Q3

REPORT INFORMATION
  Report Type: Spontaneous
  Country: GB (occurrence: GB)
  Receive Date: 20200906
  Receipt Date: 20200906
  Transmission Date: 20201103
  Serious: Yes (Disabling)
  Sender: FDA-Public Use
  Company Number: GB-SAMSUNG BIOEPIS-SB-2020-27707

PATIENT
  Age: 51 Year
  Sex: Male

DRUGS (1)
  1. IMRALDI [Suspect]
     Active Substance: ADALIMUMAB
     Indication: ANKYLOSING SPONDYLITIS
     Route: 058
     Dates: start: 20190501, end: 20200615

REACTIONS (2)
  - Drug ineffective [Recovered/Resolved with Sequelae]
  - Ankylosing spondylitis [Unknown]

NARRATIVE: CASE EVENT DATE: 20190501
